FAERS Safety Report 5796599-3 (Version None)
Quarter: 2008Q2

REPORT INFORMATION
  Report Type: 
  Country: None (occurrence: None)
  Receive Date: 20080627
  Receipt Date: 20080620
  Transmission Date: 20081010
  Serious: Yes (Hospitalization)
  Sender: FDA-Public Use
  Company Number: CHPA2008US08792

PATIENT
  Age: 75 Year
  Sex: Male
  Weight: 108.8 kg

DRUGS (3)
  1. MAALOX TOTAL STOMACH RELIEF (NCH) (BISMUTH SUBSALICYLATE) SUSPENSION [Suspect]
     Indication: DYSPEPSIA
     Dosage: 6 TSP, QD, ORAL
     Route: 048
     Dates: start: 20080523, end: 20080526
  2. MAALOX TOTAL STOMACH RELIEF (NCH) (BISMUTH SUBSALICYLATE) SUSPENSION [Suspect]
     Indication: FLATULENCE
     Dosage: 6 TSP, QD, ORAL
     Route: 048
     Dates: start: 20080523, end: 20080526
  3. ANTIHYPERTENSIVE DRUGS (NO INGREDIENTS/SUBSTANCES) [Concomitant]

REACTIONS (4)
  - CONSTIPATION [None]
  - FOAMING AT MOUTH [None]
  - MYOCARDIAL INFARCTION [None]
  - PHARMACEUTICAL PRODUCT COMPLAINT [None]
